FAERS Safety Report 8538087 (Version 2)
Quarter: 2013Q4

REPORT INFORMATION
  Report Type: Spontaneous
  Country: GB (occurrence: GB)
  Receive Date: 20120501
  Receipt Date: 20131127
  Transmission Date: 20140711
  Serious: No
  Sender: FDA-Public Use
  Company Number: GB-JNJFOC-20120412262

PATIENT
  Sex: Female

DRUGS (1)
  1. DUROGESIC DTRANS [Suspect]
     Indication: PRODUCT USED FOR UNKNOWN INDICATION
     Route: 062

REACTIONS (5)
  - Wrong technique in drug usage process [Unknown]
  - Product adhesion issue [Unknown]
  - Drug ineffective [Unknown]
  - Product quality issue [Unknown]
  - Product quality issue [Unknown]
